FAERS Safety Report 10069105 (Version 1)
Quarter: 2014Q2

REPORT INFORMATION
  Report Type: Spontaneous
  Country: IN (occurrence: IN)
  Receive Date: 20140409
  Receipt Date: 20140409
  Transmission Date: 20141212
  Serious: Yes (Death, Other)
  Sender: FDA-Public Use
  Company Number: PHHY2014IN042653

PATIENT
  Age: 27 Year
  Sex: Male

DRUGS (3)
  1. IMATINIB [Suspect]
     Indication: CHRONIC MYELOID LEUKAEMIA
  2. METHOTREXATE [Suspect]
  3. DAUNORUBICIN [Suspect]

REACTIONS (5)
  - Chronic myeloid leukaemia [Fatal]
  - Blast crisis in myelogenous leukaemia [Unknown]
  - Hepatosplenomegaly [Unknown]
  - Lymphadenopathy [Unknown]
  - Central nervous system leukaemia [Unknown]
